FAERS Safety Report 23640524 (Version 1)
Quarter: 2024Q1

REPORT INFORMATION
  Report Type: Spontaneous
  Country: US (occurrence: US)
  Receive Date: 20240318
  Receipt Date: 20240318
  Transmission Date: 20240409
  Serious: No
  Sender: FDA-Public Use
  Company Number: US-TEVA-VS-3142932

PATIENT
  Age: 75 Year
  Sex: Male

DRUGS (1)
  1. CLONAZEPAM [Suspect]
     Active Substance: CLONAZEPAM
     Indication: Musculoskeletal stiffness
     Route: 065

REACTIONS (5)
  - Oropharyngeal discomfort [Recovered/Resolved]
  - Nightmare [Unknown]
  - Fall [Unknown]
  - Injury [Unknown]
  - Incorrect dose administered [Unknown]
